FAERS Safety Report 21212491 (Version 1)
Quarter: 2022Q3

REPORT INFORMATION
  Report Type: Spontaneous
  Country: US (occurrence: None)
  Receive Date: 20220813
  Receipt Date: 20220813
  Transmission Date: 20221026
  Serious: Yes (Disabling)
  Sender: FDA-Public Use
  Company Number: None

PATIENT
  Age: 35 Year
  Sex: Female
  Weight: 81 kg

DRUGS (6)
  1. ZOLPIDEM TARTRATE [Suspect]
     Active Substance: ZOLPIDEM TARTRATE
     Indication: Insomnia
     Dosage: OTHER QUANTITY : 1 TABLET(S);?FREQUENCY : AT BEDTIME;?
     Route: 048
     Dates: start: 20220807, end: 20220812
  2. Adderall 30mg x1 daily [Concomitant]
  3. Adderall 10 mg x1 daily [Concomitant]
  4. Labetalol 200 mg 3x daily [Concomitant]
  5. Amlodipline 5 mg 1x daily [Concomitant]
  6. Ambien 10 mg 1x at night time [Concomitant]

REACTIONS (3)
  - Manufacturing issue [None]
  - Drug ineffective [None]
  - Insomnia [None]

NARRATIVE: CASE EVENT DATE: 20220808
